FAERS Safety Report 6814344-7 (Version None)
Quarter: 2010Q3

REPORT INFORMATION
  Report Type: 
  Country: None (occurrence: None)
  Receive Date: 20100702
  Receipt Date: 20100624
  Transmission Date: 20110219
  Serious: Yes (Hospitalization)
  Sender: FDA-Public Use
  Company Number: ES-SANOFI-AVENTIS-2010SA036619

PATIENT
  Age: 40 Year
  Sex: Male
  Weight: 80 kg

DRUGS (4)
  1. ENOXAPARIN SODIUM [Suspect]
     Route: 058
     Dates: start: 20100606
  2. ACYCLOVIR [Suspect]
     Indication: ENCEPHALITIS
     Route: 042
     Dates: start: 20100606, end: 20100611
  3. ACETAMINOPHEN [Suspect]
     Route: 042
     Dates: start: 20100606
  4. METAMIZOLE [Suspect]
     Route: 042
     Dates: start: 20100606

REACTIONS (1)
  - RENAL FAILURE ACUTE [None]
